FAERS Safety Report 5870360-3 (Version None)
Quarter: 2008Q3

REPORT INFORMATION
  Report Type: 
  Country: None (occurrence: None)
  Receive Date: 20080904
  Receipt Date: 20071012
  Transmission Date: 20090109
  Serious: No
  Sender: FDA-Public Use
  Company Number: US-BRISTOL-MYERS SQUIBB COMPANY-13940325

PATIENT
  Age: 78 Year
  Sex: Female
  Weight: 89 kg

DRUGS (1)
  1. DEFINITY [Suspect]
     Indication: CARDIAC STRESS TEST
     Dosage: 1.5CC OF DEFINITY IN 8.5CC OF NORMAL SALINE.
     Route: 042
     Dates: start: 20071012, end: 20071012

REACTIONS (1)
  - BACK PAIN [None]
